FAERS Safety Report 6613798-9 (Version None)
Quarter: 2010Q1

REPORT INFORMATION
  Report Type: 
  Country: None (occurrence: None)
  Receive Date: 20100226
  Receipt Date: 20100222
  Transmission Date: 20100710
  Serious: Yes (Other)
  Sender: FDA-Public Use
  Company Number: 10-000276

PATIENT
  Age: 62 Year
  Sex: Female
  Weight: 82.5 kg

DRUGS (3)
  1. DORYX [Suspect]
     Indication: PEMPHIGOID
     Dosage: 75 MG, BID, ORAL
     Route: 048
     Dates: start: 20100219
  2. SYNTHROID [Concomitant]
  3. PREDNISONE TAB [Concomitant]

REACTIONS (5)
  - ASPIRATION [None]
  - CHEST DISCOMFORT [None]
  - CHOKING [None]
  - COUGH [None]
  - WHEEZING [None]
